FAERS Safety Report 13126439 (Version 1)
Quarter: 2017Q1

REPORT INFORMATION
  Report Type: Spontaneous
  Country: NL (occurrence: NL)
  Receive Date: 20170118
  Receipt Date: 20170118
  Transmission Date: 20170428
  Serious: Yes (Hospitalization, Disabling, Other)
  Sender: FDA-Public Use
  Company Number: NL-TEVA-730727ROM

PATIENT
  Age: 55 Year
  Sex: Female

DRUGS (4)
  1. FOLIUMZUUR TABLET 5MG [Suspect]
     Active Substance: FOLIC ACID
     Indication: RHEUMATOID ARTHRITIS
     Route: 048
     Dates: start: 20130913
  2. METHOTREXATE (METHOTREXATE SODIUM) [Suspect]
     Active Substance: METHOTREXATE SODIUM
     Dosage: END DATE: END DATE OF SPECIFIC DOSE
     Route: 048
     Dates: start: 20140616, end: 20150707
  3. METHOTREXATE (METHOTREXATE SODIUM) [Suspect]
     Active Substance: METHOTREXATE SODIUM
     Indication: RHEUMATOID ARTHRITIS
     Route: 048
     Dates: start: 20130913, end: 20140616
  4. METHOTREXATE (METHOTREXATE SODIUM) [Suspect]
     Active Substance: METHOTREXATE SODIUM
     Route: 048
     Dates: start: 20150707

REACTIONS (1)
  - Liposarcoma [Unknown]

NARRATIVE: CASE EVENT DATE: 20161127
